FAERS Safety Report 15975907 (Version 1)
Quarter: 2019Q1

REPORT INFORMATION
  Report Type: Spontaneous
  Country: CA (occurrence: CA)
  Receive Date: 20190218
  Receipt Date: 20190218
  Transmission Date: 20190418
  Serious: Yes (Other)
  Sender: FDA-Public Use
  Company Number: PHHY2019CA034047

PATIENT
  Age: 68 Year
  Sex: Female
  Weight: 57.14 kg

DRUGS (1)
  1. SANDOZ TAMSULOSIN [Suspect]
     Active Substance: TAMSULOSIN
     Indication: NEPHROLITHIASIS
     Dosage: 0.4 MG, QD
     Route: 048

REACTIONS (10)
  - Bladder pain [Recovered/Resolved]
  - Brain oedema [Recovered/Resolved]
  - Disorientation [Recovered/Resolved]
  - Pollakiuria [Recovered/Resolved]
  - Insomnia [Recovered/Resolved]
  - Sinusitis [Recovered/Resolved]
  - Pruritus [Recovered/Resolved]
  - Pain [Recovered/Resolved]
  - Headache [Recovered/Resolved]
  - Urticaria [Recovered/Resolved]
